FAERS Safety Report 15402712 (Version 1)
Quarter: 2018Q3

REPORT INFORMATION
  Report Type: Spontaneous
  Country: US (occurrence: US)
  Receive Date: 20180917
  Receipt Date: 20180917
  Transmission Date: 20181010
  Serious: No
  Sender: FDA-Public Use
  Company Number: None

PATIENT
  Age: 79 Year
  Sex: Female

DRUGS (10)
  1. XARELTO [Concomitant]
     Active Substance: RIVAROXABAN
  2. VITAMIN B12 [Concomitant]
     Active Substance: CYANOCOBALAMIN
  3. METHOTREXATE. [Concomitant]
     Active Substance: METHOTREXATE
  4. FOLIC ACID. [Concomitant]
     Active Substance: FOLIC ACID
  5. ORENCIA [Suspect]
     Active Substance: ABATACEPT
     Indication: HYPERTENSION
     Dosage: ?          OTHER FREQUENCY:EVERY WEEKS;?
     Route: 058
     Dates: start: 20180606
  6. DILTIAZEM. [Concomitant]
     Active Substance: DILTIAZEM
  7. METFORMIN [Concomitant]
     Active Substance: METFORMIN HYDROCHLORIDE
  8. SOTALOL. [Concomitant]
     Active Substance: SOTALOL
  9. PANTORPRAZOLE [Concomitant]
  10. LEUCOVOR [Concomitant]

REACTIONS (1)
  - Atrial fibrillation [None]

NARRATIVE: CASE EVENT DATE: 20180901
